FAERS Safety Report 25501777 (Version 1)
Quarter: 2025Q3

REPORT INFORMATION
  Report Type: Report from Study
  Country: CN (occurrence: CN)
  Receive Date: 20250702
  Receipt Date: 20250702
  Transmission Date: 20251020
  Serious: Yes (Other)
  Sender: ROCHE
  Company Number: CN-ROCHE-10000281310

PATIENT
  Age: 56 Year
  Sex: Male
  Weight: 83 kg

DRUGS (45)
  1. POLATUZUMAB VEDOTIN [Suspect]
     Active Substance: POLATUZUMAB VEDOTIN
     Indication: Diffuse large B-cell lymphoma
     Route: 042
     Dates: start: 20250107, end: 20250107
  2. POLATUZUMAB VEDOTIN [Suspect]
     Active Substance: POLATUZUMAB VEDOTIN
     Route: 042
     Dates: start: 20241212, end: 20241212
  3. POLATUZUMAB VEDOTIN [Suspect]
     Active Substance: POLATUZUMAB VEDOTIN
     Route: 042
     Dates: start: 20250419, end: 20250419
  4. PREDNISONE [Suspect]
     Active Substance: PREDNISONE
     Indication: Diffuse large B-cell lymphoma
     Dosage: SUBSEQUENT DOSE ON: 26-MAR-2025
     Route: 048
     Dates: start: 20250106, end: 20250110
  5. PREDNISONE [Suspect]
     Active Substance: PREDNISONE
     Dosage: SUBSEQUENT DOSE ON: 26-MAR-2025
     Route: 048
     Dates: start: 20250418, end: 20250422
  6. PIRARUBICIN [Suspect]
     Active Substance: PIRARUBICIN
     Indication: Diffuse large B-cell lymphoma
     Route: 042
     Dates: start: 20250107, end: 20250107
  7. PIRARUBICIN [Suspect]
     Active Substance: PIRARUBICIN
     Route: 042
     Dates: start: 20241212, end: 20241212
  8. PIRARUBICIN [Suspect]
     Active Substance: PIRARUBICIN
     Route: 042
     Dates: start: 20250419, end: 20250419
  9. DOXORUBICIN HYDROCHLORIDE [Suspect]
     Active Substance: DOXORUBICIN HYDROCHLORIDE
     Indication: Diffuse large B-cell lymphoma
     Route: 065
  10. CYCLOPHOSPHAMIDE [Suspect]
     Active Substance: CYCLOPHOSPHAMIDE
     Indication: Diffuse large B-cell lymphoma
     Route: 042
     Dates: start: 20250107, end: 20250107
  11. CYCLOPHOSPHAMIDE [Suspect]
     Active Substance: CYCLOPHOSPHAMIDE
     Route: 042
     Dates: start: 20241212, end: 20241212
  12. CYCLOPHOSPHAMIDE [Suspect]
     Active Substance: CYCLOPHOSPHAMIDE
     Route: 042
     Dates: start: 20250419, end: 20250419
  13. ZUBERITAMAB [Suspect]
     Active Substance: ZUBERITAMAB
     Indication: Diffuse large B-cell lymphoma
     Route: 042
     Dates: start: 20250106, end: 20250106
  14. ZUBERITAMAB [Suspect]
     Active Substance: ZUBERITAMAB
     Route: 042
     Dates: start: 20241211, end: 20241211
  15. ZUBERITAMAB [Suspect]
     Active Substance: ZUBERITAMAB
     Route: 042
     Dates: start: 20250418, end: 20250418
  16. PALONOSETRON [Concomitant]
     Active Substance: PALONOSETRON
     Dosage: SUBSEQUENT DOSE RECEIVED ON: 27-MAR-2025
     Route: 042
     Dates: start: 20250301, end: 20250302
  17. PALONOSETRON [Concomitant]
     Active Substance: PALONOSETRON
     Dosage: SUBSEQUENT DOSE RECEIVED ON: 27-MAR-2025
     Route: 042
     Dates: start: 20250419, end: 20250420
  18. CIMETIDINE [Concomitant]
     Active Substance: CIMETIDINE
     Dosage: SUBSEQUENT DOSE ON: 26-MAR-2025, 18-APR-2025
     Route: 042
     Dates: start: 20250228, end: 20250301
  19. CIMETIDINE [Concomitant]
     Active Substance: CIMETIDINE
     Dosage: SUBSEQUENT DOSE ON: 26-MAR-2025, 18-APR-2025
     Route: 042
     Dates: start: 20250418, end: 20250420
  20. EFBEMALENOGRASTIM ALFA [Concomitant]
     Active Substance: EFBEMALENOGRASTIM ALFA
     Dosage: SUBSEQUENT DOSE ON: 28-MAR-2025
     Route: 058
     Dates: start: 20250302, end: 20250302
  21. EFBEMALENOGRASTIM ALFA [Concomitant]
     Active Substance: EFBEMALENOGRASTIM ALFA
     Dosage: SUBSEQUENT DOSE ON: 28-MAR-2025
     Route: 058
     Dates: start: 20250420, end: 20250420
  22. DIPHENHYDRAMINE [Concomitant]
     Active Substance: DIPHENHYDRAMINE
     Dosage: SUBSEQUENT DOSE ON: 26-MAR-2025, 18-APR-2025
     Route: 030
     Dates: start: 20250228, end: 20250301
  23. DIPHENHYDRAMINE [Concomitant]
     Active Substance: DIPHENHYDRAMINE
     Dosage: SUBSEQUENT DOSE ON: 26-MAR-2025, 18-APR-2025
     Route: 030
     Dates: start: 20250418, end: 20250419
  24. DIPHENHYDRAMINE [Concomitant]
     Active Substance: DIPHENHYDRAMINE
     Dosage: SUBSEQUENT DOSE ON: 26-MAR-2025, 18-APR-2025
     Route: 030
     Dates: start: 20250516, end: 20250516
  25. DIPHENHYDRAMINE [Concomitant]
     Active Substance: DIPHENHYDRAMINE
     Route: 030
     Dates: start: 20250527, end: 20250527
  26. DIPHENHYDRAMINE [Concomitant]
     Active Substance: DIPHENHYDRAMINE
     Route: 030
     Dates: start: 20250605, end: 20250605
  27. DEXRAZOXANE [Concomitant]
     Active Substance: DEXRAZOXANE
     Route: 042
     Dates: start: 20250301, end: 20250301
  28. DEXRAZOXANE [Concomitant]
     Active Substance: DEXRAZOXANE
     Route: 042
     Dates: start: 20250419, end: 20250419
  29. APREPITANT [Concomitant]
     Active Substance: APREPITANT
     Route: 042
     Dates: start: 20250419, end: 20250419
  30. APREPITANT [Concomitant]
     Active Substance: APREPITANT
     Route: 042
     Dates: start: 20250301, end: 20250301
  31. METOCLOPRAMIDE [Concomitant]
     Active Substance: METOCLOPRAMIDE
     Route: 030
     Dates: start: 20250301, end: 20250301
  32. METOCLOPRAMIDE [Concomitant]
     Active Substance: METOCLOPRAMIDE
     Route: 030
     Dates: start: 20250419, end: 20250419
  33. DEXAMETHASONE SODIUM PHOSPHATE [Concomitant]
     Active Substance: DEXAMETHASONE SODIUM PHOSPHATE
     Route: 042
     Dates: start: 20250326, end: 20250326
  34. DEXAMETHASONE SODIUM PHOSPHATE [Concomitant]
     Active Substance: DEXAMETHASONE SODIUM PHOSPHATE
     Route: 042
     Dates: start: 20250418, end: 20250418
  35. DEXAMETHASONE SODIUM PHOSPHATE [Concomitant]
     Active Substance: DEXAMETHASONE SODIUM PHOSPHATE
     Route: 042
     Dates: start: 20250516, end: 20250516
  36. DEXAMETHASONE SODIUM PHOSPHATE [Concomitant]
     Active Substance: DEXAMETHASONE SODIUM PHOSPHATE
     Route: 042
     Dates: start: 20250517, end: 20250517
  37. DEXAMETHASONE SODIUM PHOSPHATE [Concomitant]
     Active Substance: DEXAMETHASONE SODIUM PHOSPHATE
     Route: 042
     Dates: start: 20250527, end: 20250527
  38. DEXAMETHASONE SODIUM PHOSPHATE [Concomitant]
     Active Substance: DEXAMETHASONE SODIUM PHOSPHATE
     Route: 042
     Dates: start: 20250605, end: 20250605
  39. Netupitant and Palonosetron Hydrochloride [Concomitant]
     Dosage: DOSE RECEIVED ON: 18-APR-2025
     Route: 048
     Dates: start: 20250326, end: 20250326
  40. Netupitant and Palonosetron Hydrochloride [Concomitant]
     Dosage: DOSE RECEIVED ON: 18-APR-2025
     Route: 048
     Dates: start: 20250418, end: 20250418
  41. LIDOCAINE HYDROCHLORIDE [Concomitant]
     Active Substance: LIDOCAINE HYDROCHLORIDE
     Route: 050
     Dates: start: 20250326, end: 20250326
  42. LIDOCAINE HYDROCHLORIDE [Concomitant]
     Active Substance: LIDOCAINE HYDROCHLORIDE
     Route: 050
     Dates: start: 20250418, end: 20250418
  43. OMEPRAZOLE SODIUM [Concomitant]
     Active Substance: OMEPRAZOLE SODIUM
     Route: 042
     Dates: start: 20250516, end: 20250518
  44. IBUPROFEN [Concomitant]
     Active Substance: IBUPROFEN
     Route: 048
     Dates: start: 20250516, end: 20250516
  45. DEXAMETHASONE ACETATE [Concomitant]
     Active Substance: DEXAMETHASONE ACETATE
     Route: 048
     Dates: start: 20250527, end: 20250529

REACTIONS (4)
  - Lymphocyte count decreased [Not Recovered/Not Resolved]
  - Gamma-glutamyltransferase increased [Recovered/Resolved]
  - Leukopenia [Recovered/Resolved]
  - Anaemia [Recovered/Resolved]

NARRATIVE: CASE EVENT DATE: 20250331
